FAERS Safety Report 5531850-6 (Version None)
Quarter: 2007Q4

REPORT INFORMATION
  Report Type: 
  Country: None (occurrence: None)
  Receive Date: 20071203
  Receipt Date: 20071126
  Transmission Date: 20080405
  Serious: Yes (Other)
  Sender: FDA-Public Use
  Company Number: FR-ROCHE-533856

PATIENT
  Age: 63 Year
  Sex: Female

DRUGS (10)
  1. BONIVA [Suspect]
     Indication: OSTEOPOROSIS
     Route: 048
     Dates: start: 20070921
  2. INEXIUM [Concomitant]
  3. MOTILIUM [Concomitant]
  4. NOCTAMIDE [Concomitant]
  5. TRIMEBUTINE [Concomitant]
     Dosage: DRUG NAME TRIMEBUTINE 100, DOSE 3 DOSES PER DAY
  6. LEVOTHYROX [Concomitant]
     Dosage: DRUG NAME LEVOTHYROX 150
  7. ZOCOR [Concomitant]
  8. VASTAREL [Concomitant]
     Dosage: DRUG NAME VASTAREL 35
  9. ENDOTELON [Concomitant]
  10. SIBUTRAL [Concomitant]
     Indication: WEIGHT CONTROL

REACTIONS (3)
  - ABDOMINAL PAIN [None]
  - FLATULENCE [None]
  - INFLUENZA LIKE ILLNESS [None]
